FAERS Safety Report 18121408 (Version 1)
Quarter: 2020Q3

REPORT INFORMATION
  Report Type: Spontaneous
  Country: US (occurrence: US)
  Receive Date: 20200806
  Receipt Date: 20200806
  Transmission Date: 20201103
  Serious: No
  Sender: FDA-Public Use
  Company Number: US-ASSERTIO THERAPEUTICS, INC.-US-2019DEP001318

PATIENT
  Age: 26 Year
  Sex: Female

DRUGS (1)
  1. CAMBIA [Suspect]
     Active Substance: DICLOFENAC POTASSIUM
     Indication: HEMIPLEGIC MIGRAINE
     Dosage: 50 MG, UNK
     Route: 048

REACTIONS (2)
  - Product use in unapproved indication [Unknown]
  - Nasopharyngitis [Recovered/Resolved]

NARRATIVE: CASE EVENT DATE: 20190702
